FAERS Safety Report 6850749-6 (Version None)
Quarter: 2010Q3

REPORT INFORMATION
  Report Type: 
  Country: None (occurrence: None)
  Receive Date: 20100716
  Receipt Date: 20100713
  Transmission Date: 20110219
  Serious: Yes (Other)
  Sender: FDA-Public Use
  Company Number: US-AMGEN-QUU422104

PATIENT
  Sex: Female
  Weight: 88.5 kg

DRUGS (8)
  1. NPLATE [Suspect]
     Indication: THROMBOCYTOPENIA
     Dates: start: 20090623, end: 20090728
  2. DECADRON [Concomitant]
  3. ADDERALL 10 [Concomitant]
     Route: 048
  4. EFFEXOR XR [Concomitant]
     Route: 048
  5. IRON [Concomitant]
  6. VITAMIN C [Concomitant]
  7. VITAMIN B-12 [Concomitant]
  8. FOLIC ACID [Concomitant]

REACTIONS (2)
  - MIGRAINE [None]
  - VISION BLURRED [None]
